FAERS Safety Report 5754287-3 (Version None)
Quarter: 2008Q2

REPORT INFORMATION
  Report Type: 
  Country: None (occurrence: None)
  Receive Date: 20080530
  Receipt Date: 20080521
  Transmission Date: 20081010
  Serious: Yes (Other)
  Sender: FDA-Public Use
  Company Number: FR-PFIZER INC-2008039859

PATIENT
  Sex: Male

DRUGS (14)
  1. VIRACEPT [Suspect]
     Dosage: DAILY DOSE:1250MG
     Route: 048
     Dates: start: 20000114, end: 20010420
  2. VIREAD [Suspect]
     Dosage: DAILY DOSE:245MG
     Route: 048
     Dates: start: 20030211
  3. EPIVIR [Suspect]
     Dosage: DAILY DOSE:300MG
     Route: 048
  4. REYATAZ [Suspect]
     Route: 048
  5. RETROVIR [Concomitant]
     Dates: start: 19940503, end: 19961008
  6. VIDEX [Concomitant]
     Dates: start: 19950502, end: 19961008
  7. CRIXIVAN [Concomitant]
     Dates: start: 19960903, end: 20000114
  8. ZERIT [Concomitant]
     Dates: start: 19961008, end: 20030211
  9. SUSTIVA [Concomitant]
     Dates: start: 20010420, end: 20010905
  10. NORVIR [Concomitant]
     Dates: start: 20010913, end: 20011012
  11. TRIATEC [Concomitant]
  12. FOSAMPRENAVIR [Concomitant]
     Dates: start: 20041012, end: 20060613
  13. AMLOR [Concomitant]
  14. ASPIRIN [Concomitant]

REACTIONS (3)
  - ANOGENITAL DYSPLASIA [None]
  - ANOGENITAL WARTS [None]
  - RECTAL CANCER [None]
